FAERS Safety Report 18089231 (Version 1)
Quarter: 2020Q3

REPORT INFORMATION
  Report Type: Spontaneous
  Country: CA (occurrence: CA)
  Receive Date: 20200729
  Receipt Date: 20200729
  Transmission Date: 20201103
  Serious: Yes (Life-Threatening, Hospitalization)
  Sender: FDA-Public Use
  Company Number: CA-TEVA-2020-CA-1806562

PATIENT
  Age: 17 Year
  Sex: Male

DRUGS (6)
  1. FLUOXETINE [Concomitant]
     Active Substance: FLUOXETINE HYDROCHLORIDE
  2. TRAZODONE [Suspect]
     Active Substance: TRAZODONE HYDROCHLORIDE
     Indication: SLEEP DISORDER
     Dosage: 25 MILLIGRAM DAILY;
     Route: 048
  3. GLYCOPYRROLATE INJECTION USP [Concomitant]
     Active Substance: GLYCOPYRRONIUM
  4. NAPROXEN. [Concomitant]
     Active Substance: NAPROXEN
  5. ESOMEPRAZOLE. [Concomitant]
     Active Substance: ESOMEPRAZOLE MAGNESIUM
  6. LEVOCARNITINE. [Concomitant]
     Active Substance: LEVOCARNITINE

REACTIONS (3)
  - Hypoventilation [Recovered/Resolved]
  - Sedation complication [Recovered/Resolved]
  - Respiratory arrest [Recovered/Resolved]
